FAERS Safety Report 19855864 (Version 7)
Quarter: 2022Q2

REPORT INFORMATION
  Report Type: Report from Study
  Country: US (occurrence: US)
  Receive Date: 20210920
  Receipt Date: 20220531
  Transmission Date: 20220721
  Serious: Yes (Other)
  Sender: FDA-Public Use
  Company Number: US-NOVARTISTESTPH-NVSC2021US210871

PATIENT
  Age: 0 Year
  Sex: Male

DRUGS (4)
  1. ZOLGENSMA [Suspect]
     Active Substance: ONASEMNOGENE ABEPARVOVEC-XIOI
     Indication: Spinal muscular atrophy
     Dosage: UNK UNK, ONCE/SINGLE (5.5 KG (KILOGRAM))
     Route: 042
     Dates: start: 20210528, end: 20210528
  2. ZOLGENSMA [Suspect]
     Active Substance: ONASEMNOGENE ABEPARVOVEC-XIOI
     Dosage: UNK UNK, ONCE/SINGLE (8.28 KG, (KILOGRAM))
     Route: 042
     Dates: start: 20210528, end: 20210528
  3. ALBUTEROL [Concomitant]
     Active Substance: ALBUTEROL
     Indication: Product used for unknown indication
     Dosage: 90 MG
     Route: 055
  4. AMLODIPINE [Concomitant]
     Active Substance: AMLODIPINE BESYLATE
     Indication: Product used for unknown indication
     Dosage: UNK
     Route: 048
     Dates: start: 20210611

REACTIONS (6)
  - Hypertransaminasaemia [Recovered/Resolved]
  - Respiratory syncytial virus infection [Recovered/Resolved]
  - Hypokinesia [Unknown]
  - Pyrexia [Unknown]
  - Cough [Unknown]
  - Vomiting [Unknown]

NARRATIVE: CASE EVENT DATE: 20210823
